FAERS Safety Report 6441819-5 (Version None)
Quarter: 2009Q4

REPORT INFORMATION
  Report Type: 
  Country: None (occurrence: None)
  Receive Date: 20091113
  Receipt Date: 20091113
  Transmission Date: 20100525
  Serious: Yes (Other)
  Sender: FDA-Public Use
  Company Number: None

PATIENT
  Age: 55 Year
  Sex: Male
  Weight: 90.7194 kg

DRUGS (1)
  1. ARMOUR THYROID 2 GRAIN FOREST LABS [Suspect]
     Indication: HYPOTHYROIDISM
     Dosage: 2 GRAIN ONCE DAILY PO
     Route: 048
     Dates: start: 20041015, end: 20091015

REACTIONS (2)
  - DRUG INEFFECTIVE [None]
  - PRODUCT SUBSTITUTION ISSUE [None]
